FAERS Safety Report 4751783-2 (Version None)
Quarter: 2005Q3

REPORT INFORMATION
  Report Type: 
  Country: None (occurrence: None)
  Receive Date: 20050824
  Receipt Date: 20050817
  Transmission Date: 20060218
  Serious: Yes (Death)
  Sender: FDA-Public Use
  Company Number: US-BRISTOL-MYERS SQUIBB COMPANY-13081989

PATIENT
  Sex: Male

DRUGS (1)
  1. BICNU [Suspect]

REACTIONS (1)
  - DEATH [None]
